FAERS Safety Report 8829967 (Version 2)
Quarter: 2014Q3

REPORT INFORMATION
  Report Type: Report from Study
  Country: US (occurrence: US)
  Receive Date: 20121008
  Receipt Date: 20140826
  Transmission Date: 20150326
  Serious: Yes (Other)
  Sender: FDA-Public Use
  Company Number: US-ROCHE-1132018

PATIENT
  Sex: Female
  Weight: 48.12 kg

DRUGS (13)
  1. VINCRISTINE [Concomitant]
     Active Substance: VINCRISTINE
     Route: 065
     Dates: start: 19990407, end: 19990511
  2. LORAZEPAM. [Concomitant]
     Active Substance: LORAZEPAM
     Route: 065
  3. RITUXAN [Suspect]
     Active Substance: RITUXIMAB
     Indication: CHRONIC LYMPHOCYTIC LEUKAEMIA REFRACTORY
     Dosage: 585 MG WEEKLY
     Route: 065
     Dates: start: 19980708, end: 19980731
  4. PREDNISONE. [Concomitant]
     Active Substance: PREDNISONE
     Route: 065
     Dates: start: 19950606, end: 19960311
  5. PREDNISONE. [Concomitant]
     Active Substance: PREDNISONE
     Dosage: 100 MG FOR 4 DAYS
     Route: 065
     Dates: start: 19920507, end: 19920916
  6. FLUDARABINE [Concomitant]
     Active Substance: FLUDARABINE PHOSPHATE
     Dosage: 40 MG DAILY TWO TIMES
     Route: 065
     Dates: start: 19990920, end: 20000207
  7. SEPTRA DS [Concomitant]
     Active Substance: SULFAMETHOXAZOLE\TRIMETHOPRIM
     Route: 048
  8. RITUXAN [Suspect]
     Active Substance: RITUXIMAB
     Indication: LYMPHOCYTIC LYMPHOMA
     Dosage: 600 MG WEEKLY
     Route: 042
     Dates: start: 20010212, end: 20010402
  9. CYTOXAN [Concomitant]
     Active Substance: CYCLOPHOSPHAMIDE
  10. FLUDARABINE [Concomitant]
     Active Substance: FLUDARABINE PHOSPHATE
     Dosage: 40 MG DAILY THREE TIMES
     Route: 065
     Dates: start: 19971105, end: 19980216
  11. LEUKERAN [Concomitant]
     Active Substance: CHLORAMBUCIL
  12. VINCRISTINE [Concomitant]
     Active Substance: VINCRISTINE
     Route: 065
     Dates: start: 19961017, end: 19970402
  13. RITUXAN [Suspect]
     Active Substance: RITUXIMAB
     Indication: DIFFUSE LARGE B-CELL LYMPHOMA

REACTIONS (12)
  - Pain in extremity [Unknown]
  - Fatigue [Unknown]
  - Early satiety [Unknown]
  - Pancytopenia [Unknown]
  - Hepatomegaly [Unknown]
  - Disease progression [Unknown]
  - Abdominal distension [Unknown]
  - Anaemia [Unknown]
  - Abdominal pain [Unknown]
  - Decreased appetite [Unknown]
  - Splenomegaly [Unknown]
  - Lymphadenopathy [Unknown]
